FAERS Safety Report 7246907-1 (Version None)
Quarter: 2011Q1

REPORT INFORMATION
  Report Type: 
  Country: None (occurrence: None)
  Receive Date: 20110127
  Receipt Date: 20110120
  Transmission Date: 20110831
  Serious: Yes (Other)
  Sender: FDA-Public Use
  Company Number: US-BRISTOL-MYERS SQUIBB COMPANY-15190622

PATIENT
  Age: 44 Year
  Sex: Female
  Weight: 56 kg

DRUGS (5)
  1. ABILIFY [Suspect]
     Dates: end: 20080401
  2. NEURONTIN [Suspect]
  3. DEPAKOTE [Suspect]
     Route: 065
  4. EFFEXOR [Suspect]
     Indication: DEPRESSION
     Dosage: DOSE INCREASED TO 150MG THREE TIMES DAILY
     Route: 048
     Dates: start: 20040101
  5. EFFEXOR XR [Suspect]
     Indication: DEPRESSION
     Route: 048
     Dates: end: 20100501

REACTIONS (3)
  - WEIGHT DECREASED [None]
  - WEIGHT INCREASED [None]
  - TRICHOTILLOMANIA [None]
